FAERS Safety Report 21886770 (Version 8)
Quarter: 2025Q3

REPORT INFORMATION
  Report Type: Spontaneous
  Country: JP (occurrence: JP)
  Receive Date: 20230119
  Receipt Date: 20250804
  Transmission Date: 20251020
  Serious: Yes (Death, Life-Threatening, Hospitalization, Other)
  Sender: ALEXION PHARMACEUTICALS
  Company Number: 2023A009504

PATIENT
  Age: 61 Year
  Sex: Male
  Weight: 67 kg

DRUGS (20)
  1. TAGRISSO [Suspect]
     Active Substance: OSIMERTINIB
     Indication: Non-small cell lung cancer
     Dosage: 80 MILLIGRAM, QD
     Dates: start: 20220318, end: 20220328
  2. TAGRISSO [Suspect]
     Active Substance: OSIMERTINIB
     Indication: Lung adenocarcinoma stage IV
     Dosage: 80 MILLIGRAM, QD
     Dates: start: 202309
  3. NEXIUM [Suspect]
     Active Substance: ESOMEPRAZOLE MAGNESIUM
     Indication: Gastrooesophageal reflux disease
     Dosage: 20 MILLIGRAM, QD
     Dates: start: 20220301, end: 20220406
  4. IRESSA [Suspect]
     Active Substance: GEFITINIB
     Dosage: 250 MILLIGRAM, QD
     Dates: start: 20220407
  5. CARBOPLATIN [Suspect]
     Active Substance: CARBOPLATIN
     Indication: Gastrooesophageal reflux disease
     Dates: start: 20230131, end: 20230328
  6. CARBOPLATIN [Suspect]
     Active Substance: CARBOPLATIN
     Dates: start: 20230418, end: 20230418
  7. CARBOPLATIN [Suspect]
     Active Substance: CARBOPLATIN
  8. PACLITAXEL [Suspect]
     Active Substance: PACLITAXEL
     Indication: Gastrooesophageal reflux disease
     Dates: start: 20230131, end: 20230328
  9. PACLITAXEL [Suspect]
     Active Substance: PACLITAXEL
     Dates: start: 20230418, end: 20230418
  10. PACLITAXEL [Suspect]
     Active Substance: PACLITAXEL
  11. VALSARTAN [Concomitant]
     Active Substance: VALSARTAN
     Indication: Hypertension
     Dosage: 80 MILLIGRAM, QD
  12. AMLODIPINE [Concomitant]
     Active Substance: AMLODIPINE BESYLATE
     Indication: Hypertension
     Dosage: 5 MILLIGRAM, QD
  13. LOXOPROFEN [Concomitant]
     Active Substance: LOXOPROFEN
     Indication: Non-small cell lung cancer
     Dosage: 60 MILLIGRAM, TID
     Dates: start: 20220301, end: 20220406
  14. NOVAMIN [Concomitant]
     Dosage: 5 MILLIGRAM, TID
     Dates: start: 20220301, end: 20220322
  15. CALCIUM CARBONATE\CHOLECALCIFEROL\MAGNESIUM CARBONATE [Concomitant]
     Active Substance: CALCIUM CARBONATE\CHOLECALCIFEROL\MAGNESIUM CARBONATE
     Dosage: 2 DOSAGE FORM, QD
     Dates: start: 20220315, end: 20220406
  16. SYMPROIC [Concomitant]
     Active Substance: NALDEMEDINE TOSYLATE
     Dosage: .2 MILLIGRAM, QD
     Dates: start: 20220315, end: 202206
  17. MAGNESIUM OXIDE [Concomitant]
     Active Substance: MAGNESIUM OXIDE
     Dosage: 330 MILLIGRAM, TID
     Dates: start: 20220315, end: 202206
  18. OXYCODONE [Concomitant]
     Active Substance: OXYCODONE
     Dosage: 10 MILLIGRAM, BID
     Dates: start: 20220315, end: 202206
  19. DENOSUMAB [Concomitant]
     Active Substance: DENOSUMAB
     Dates: start: 20220315, end: 20220415
  20. DENOSUMAB [Concomitant]
     Active Substance: DENOSUMAB

REACTIONS (9)
  - Coagulation factor deficiency [Recovering/Resolving]
  - Pericarditis malignant [Recovering/Resolving]
  - Cardiac tamponade [Recovering/Resolving]
  - Paronychia [Recovering/Resolving]
  - Tinea pedis [Recovering/Resolving]
  - Hepatic function abnormal [Fatal]
  - Diverticulum intestinal haemorrhagic [Recovered/Resolved]
  - Iron deficiency anaemia [Unknown]
  - Granulocytopenia [Not Recovered/Not Resolved]

NARRATIVE: CASE EVENT DATE: 20220325
